FAERS Safety Report 21225860 (Version 4)
Quarter: 2023Q1

REPORT INFORMATION
  Report Type: Spontaneous
  Country: US (occurrence: US)
  Receive Date: 20220818
  Receipt Date: 20230120
  Transmission Date: 20230417
  Serious: Yes (Hospitalization, Other)
  Sender: FDA-Public Use
  Company Number: US-BRISTOL-MYERS SQUIBB COMPANY-2022-091819

PATIENT
  Age: 73 Year
  Sex: Female

DRUGS (5)
  1. POMALYST [Suspect]
     Active Substance: POMALIDOMIDE
     Indication: Neoplasm malignant
     Route: 048
     Dates: start: 20220718
  2. POMALYST [Suspect]
     Active Substance: POMALIDOMIDE
     Indication: Plasma cell myeloma
     Dosage: FREQUENCY: DAILY FOR 21 DAYS ON THEN 7 DAYS OFF??FREQUENCY: DAILY
     Route: 048
     Dates: start: 202207
  3. POMALYST [Suspect]
     Active Substance: POMALIDOMIDE
     Indication: Thrombocytopenia
  4. POMALYST [Suspect]
     Active Substance: POMALIDOMIDE
     Indication: Stem cell transplant
  5. POMALYST [Suspect]
     Active Substance: POMALIDOMIDE
     Indication: Hypomagnesaemia

REACTIONS (5)
  - Dizziness [Unknown]
  - Visual impairment [Unknown]
  - Glycosylated haemoglobin increased [Unknown]
  - Drug ineffective [Unknown]
  - Haemorrhage [Unknown]
